FAERS Safety Report 5849170-9 (Version None)
Quarter: 2008Q3

REPORT INFORMATION
  Report Type: 
  Country: None (occurrence: None)
  Receive Date: 20080818
  Receipt Date: 20080818
  Transmission Date: 20090109
  Serious: Yes (Hospitalization, Other)
  Sender: FDA-Public Use
  Company Number: None

PATIENT
  Age: 44 Year
  Sex: Male
  Weight: 149.687 kg

DRUGS (1)
  1. LEVAQUIN [Suspect]
     Indication: UPPER RESPIRATORY TRACT INFECTION
     Dosage: 500MG 1 X DAY PO
     Route: 048
     Dates: start: 20080310, end: 20080315

REACTIONS (12)
  - ABASIA [None]
  - ARTHRITIS [None]
  - ARTHROPATHY [None]
  - DRUG INEFFECTIVE [None]
  - FASCIITIS [None]
  - GOUT [None]
  - JOINT SWELLING [None]
  - OEDEMA PERIPHERAL [None]
  - PAIN IN EXTREMITY [None]
  - PARAESTHESIA [None]
  - SKIN ULCER [None]
  - TENDON PAIN [None]
